FAERS Safety Report 11173271 (Version 1)
Quarter: 2015Q2

REPORT INFORMATION
  Report Type: Report from Study
  Country: BR (occurrence: BR)
  Receive Date: 20150608
  Receipt Date: 20150608
  Transmission Date: 20150821
  Serious: Yes (Other)
  Sender: FDA-Public Use
  Company Number: PHHY2015BR065469

PATIENT
  Sex: Male
  Weight: 95 kg

DRUGS (5)
  1. MANIVASC [Suspect]
     Active Substance: MANIDIPINE HYDROCHLORIDE
     Indication: PRODUCT USED FOR UNKNOWN INDICATION
     Dosage: 10 MG, QD (EARLY IN THE MORNING) YEARS AGO
     Route: 065
  2. DIOVAN HCT [Suspect]
     Active Substance: HYDROCHLOROTHIAZIDE\VALSARTAN
     Indication: BLOOD PRESSURE
     Dosage: 1 DF, QD
     Route: 065
  3. CLINFAR [Suspect]
     Active Substance: SIMVASTATIN
     Indication: BLOOD CHOLESTEROL
     Dosage: 40 MG, QD (IN EVENING) YEARS AGO
     Route: 065
  4. GLIFAGE [Suspect]
     Active Substance: METFORMIN HYDROCHLORIDE
     Dosage: 1 DF, BID (IN THE MORNING AND IN THE EVENING) YEARS AGO
     Route: 065
  5. DIAMICRON MR [Suspect]
     Active Substance: GLICLAZIDE
     Indication: DIABETES MELLITUS
     Dosage: 60 MG, QD (1 YEAR AGO IN MORNING)
     Route: 065

REACTIONS (2)
  - Macular degeneration [Unknown]
  - Visual impairment [Unknown]
